FAERS Safety Report 8368374-7 (Version None)
Quarter: 2012Q2

REPORT INFORMATION
  Report Type: 
  Country: None (occurrence: None)
  Receive Date: 20120517
  Receipt Date: 20120509
  Transmission Date: 20120825
  Serious: Yes (Hospitalization)
  Sender: FDA-Public Use
  Company Number: CA-ELI_LILLY_AND_COMPANY-CA201205004415

PATIENT
  Age: 86 Year
  Sex: Female

DRUGS (10)
  1. OXAZEPAM [Concomitant]
  2. DOCUSATE SODIUM [Concomitant]
  3. VITAMIN B-12 [Concomitant]
  4. ZAROXOLYN [Concomitant]
  5. ZYLOPRIM [Concomitant]
  6. ASPIRIN [Concomitant]
     Dosage: 80 MG, UNK
  7. LASIX [Concomitant]
  8. SYNTHROID [Concomitant]
  9. FORTEO [Suspect]
     Indication: OSTEOPOROSIS
     Dosage: 20 UG, QD
     Route: 058
     Dates: start: 20120406
  10. FOLIC ACID [Concomitant]

REACTIONS (4)
  - CHOLELITHIASIS [None]
  - MEDICATION ERROR [None]
  - ABDOMINAL PAIN [None]
  - BACK PAIN [None]
